FAERS Safety Report 9475153 (Version 1)
Quarter: 2013Q3

REPORT INFORMATION
  Report Type: Spontaneous
  Country: GB (occurrence: None)
  Receive Date: 20130820
  Receipt Date: 20130820
  Transmission Date: 20140515
  Serious: Yes (Hospitalization, Other)
  Sender: FDA-Public Use
  Company Number: GER/UKI/13/0034018

PATIENT
  Age: 83 Year
  Sex: Female

DRUGS (4)
  1. ATORVASTATIN [Suspect]
     Indication: PRODUCT USED FOR UNKNOWN INDICATION
     Route: 048
     Dates: end: 20130710
  2. ASPRIN (ACETYLSAICYLIC ACID) [Concomitant]
  3. CALCICHEW D3 (LEKOVIT CA) [Concomitant]
  4. RAMIPRIL (RAMIPRIL) [Concomitant]

REACTIONS (4)
  - Dehydration [None]
  - Renal failure acute [None]
  - Rhabdomyolysis [None]
  - Fall [None]
